FAERS Safety Report 6211504-3 (Version None)
Quarter: 2009Q2

REPORT INFORMATION
  Report Type: 
  Country: None (occurrence: None)
  Receive Date: 20090528
  Receipt Date: 20090518
  Transmission Date: 20091009
  Serious: Yes (Other)
  Sender: FDA-Public Use
  Company Number: 2009AP002035

PATIENT
  Age: 65 Year
  Sex: Female

DRUGS (7)
  1. AMLODIPINE BESYLATE [Suspect]
     Indication: BLOOD PRESSURE
     Dosage: 5 MG; QD PO
     Route: 048
  2. OMEPRAZOLE [Suspect]
     Indication: HIATUS HERNIA
     Dosage: 20 MG; QD PO
     Route: 048
  3. SERETIDE (SERETIDE MITE) [Suspect]
     Indication: ASTHMA
     Dosage: 2 DF; BID INH
     Route: 055
     Dates: start: 20040101
  4. VENTOLIN [Suspect]
     Indication: ASTHMA
     Dosage: 100 ?G; PRN INH
     Route: 055
  5. SINGULAIR [Suspect]
     Indication: ASTHMA
     Dosage: 10 MG; QD PO
  6. DIHYDROCODEINE COMPOUND [Concomitant]
  7. TRIAMCINOLONE [Concomitant]

REACTIONS (4)
  - ASTHMA [None]
  - CONDITION AGGRAVATED [None]
  - INCREASED UPPER AIRWAY SECRETION [None]
  - RHINITIS [None]
